FAERS Safety Report 6757871-3 (Version None)
Quarter: 2010Q2

REPORT INFORMATION
  Report Type: 
  Country: None (occurrence: None)
  Receive Date: 20100604
  Receipt Date: 20100604
  Transmission Date: 20101027
  Serious: Yes (Other)
  Sender: FDA-Public Use
  Company Number: None

PATIENT
  Age: 54 Year
  Sex: Female
  Weight: 68.0396 kg

DRUGS (2)
  1. ZOLPIDEM TARTRATE [Suspect]
     Indication: INSOMNIA
     Dosage: TAKE 1/2 OR 1 TABLET BY MOUTH ONCE AT BEDTIME
     Route: 048
     Dates: start: 20100426, end: 20100502
  2. MERTAZAPINE [Concomitant]

REACTIONS (5)
  - CONCUSSION [None]
  - FALL [None]
  - HEAD INJURY [None]
  - HYPERACUSIS [None]
  - SOMNAMBULISM [None]
